FAERS Safety Report 19676581 (Version 1)
Quarter: 2021Q3

REPORT INFORMATION
  Report Type: Spontaneous
  Country: PL (occurrence: PL)
  Receive Date: 20210809
  Receipt Date: 20210809
  Transmission Date: 20211014
  Serious: Yes (Other)
  Sender: FDA-Public Use
  Company Number: PL-PFIZER INC-202100947125

PATIENT
  Age: 58 Year
  Sex: Male
  Weight: 78 kg

DRUGS (1)
  1. SUTENT [Suspect]
     Active Substance: SUNITINIB MALATE
     Indication: RENAL CELL CARCINOMA
     Dosage: 50 MG
     Route: 048

REACTIONS (12)
  - Alanine aminotransferase increased [Unknown]
  - Chronic kidney disease [Unknown]
  - Hyperglycaemia [Unknown]
  - Dyspepsia [Unknown]
  - Thrombocytopenia [Unknown]
  - Stomatitis [Unknown]
  - Neutropenia [Unknown]
  - Weight increased [Unknown]
  - Epistaxis [Unknown]
  - Aspartate aminotransferase increased [Unknown]
  - Arthralgia [Unknown]
  - Blood thyroid stimulating hormone [Unknown]
